FAERS Safety Report 6328524-0 (Version None)
Quarter: 2009Q3

REPORT INFORMATION
  Report Type: 
  Country: None (occurrence: None)
  Receive Date: 20090826
  Receipt Date: 20090819
  Transmission Date: 20100115
  Serious: Yes (Death)
  Sender: FDA-Public Use
  Company Number: US-BIOGENIDEC-2009BI025790

PATIENT
  Age: 47 Year
  Sex: Female

DRUGS (8)
  1. TYSABRI [Suspect]
     Indication: MULTIPLE SCLEROSIS
     Route: 042
     Dates: start: 20090622, end: 20090803
  2. BACLOFEN [Concomitant]
     Route: 048
  3. BACLOFEN [Concomitant]
     Route: 048
  4. AMBIEN [Concomitant]
     Route: 048
  5. LEXAPRO [Concomitant]
     Route: 048
  6. TRIMETHOPRIM [Concomitant]
     Route: 048
  7. CLARITIN [Concomitant]
     Route: 048
  8. OVCON-35 [Concomitant]

REACTIONS (1)
  - DEATH [None]
